FAERS Safety Report 24367030 (Version 1)
Quarter: 2024Q3

REPORT INFORMATION
  Report Type: Spontaneous
  Country: RU (occurrence: RU)
  Receive Date: 20240926
  Receipt Date: 20240926
  Transmission Date: 20241017
  Serious: Yes (Hospitalization)
  Sender: NOVARTIS
  Company Number: RU-002147023-NVSC2024RU190259

PATIENT
  Age: 16 Year
  Sex: Female

DRUGS (1)
  1. TRILEPTAL [Suspect]
     Active Substance: OXCARBAZEPINE
     Indication: Suicide attempt
     Dosage: 6 DOSAGE FORM
     Route: 048
     Dates: start: 20240904, end: 20240904

REACTIONS (1)
  - Lethargy [Unknown]

NARRATIVE: CASE EVENT DATE: 20240905
